FAERS Safety Report 19939927 (Version 1)
Quarter: 2021Q4

REPORT INFORMATION
  Report Type: Spontaneous
  Country: GB (occurrence: PE)
  Receive Date: 20211011
  Receipt Date: 20211011
  Transmission Date: 20220303
  Serious: Yes (Other)
  Sender: FDA-Public Use
  Company Number: PE-ROCHE-2926240

PATIENT

DRUGS (1)
  1. TARCEVA [Suspect]
     Active Substance: ERLOTINIB HYDROCHLORIDE
     Indication: Adenocarcinoma
     Dosage: UNK UNK, UNKNOWN FREQ.(DOSE AND FREQUENCY WERE NOT REPORTED)
     Route: 048

REACTIONS (3)
  - Brain neoplasm malignant [Unknown]
  - Therapeutic product effect decreased [Unknown]
  - Drug ineffective [Unknown]
